FAERS Safety Report 8021915-1 (Version None)
Quarter: 2011Q4

REPORT INFORMATION
  Report Type: 
  Country: None (occurrence: None)
  Receive Date: 20111229
  Receipt Date: 20111219
  Transmission Date: 20120403
  Serious: Yes (Hospitalization, Other)
  Sender: FDA-Public Use
  Company Number: 1106521

PATIENT
  Age: 66 Year
  Sex: Male

DRUGS (5)
  1. METHOTREXATE [Suspect]
     Indication: PSORIASIS
     Dosage: 5 MG MILLIGRAM(S), 1 WEEK, ORAL
     Route: 048
  2. SIMVASTATIN [Concomitant]
  3. NICORANDIL [Concomitant]
  4. HUMIRA [Suspect]
     Dosage: 40 MG MILLIGRAM (S), 1 WEEK, SUBCUTANEOUS
     Route: 058
  5. OMEPRAZOLE [Concomitant]

REACTIONS (3)
  - OFF LABEL USE [None]
  - RENAL MASS [None]
  - RENAL CELL CARCINOMA [None]
